FAERS Safety Report 4601622-5 (Version None)
Quarter: 2005Q1

REPORT INFORMATION
  Report Type: 
  Country: None (occurrence: None)
  Receive Date: 20050131
  Receipt Date: 20041027
  Transmission Date: 20050727
  Serious: No
  Sender: FDA-Public Use
  Company Number: 200418339US

PATIENT
  Age: 47 Year
  Sex: Male

DRUGS (7)
  1. KETEK [Suspect]
     Indication: BRONCHITIS
     Dosage: 800 MG QD PO
  2. PARACETAMOL [Concomitant]
  3. HYDROCODONE BITARTRATE (NORCO) [Concomitant]
  4. IMITREX [Concomitant]
  5. PRILOSEC [Concomitant]
  6. VALIUM [Concomitant]
  7. TRAZODONE HCL [Concomitant]

REACTIONS (2)
  - DYSURIA [None]
  - PROSTATITIS [None]
